FAERS Safety Report 4849556-5 (Version None)
Quarter: 2005Q4

REPORT INFORMATION
  Report Type: 
  Country: None (occurrence: None)
  Receive Date: 20051207
  Receipt Date: 20051121
  Transmission Date: 20060501
  Serious: Yes (Other)
  Sender: FDA-Public Use
  Company Number: 191715

PATIENT
  Age: 30 Year
  Sex: Male
  Weight: 74.8435 kg

DRUGS (3)
  1. AVONEX [Suspect]
     Indication: MULTIPLE SCLEROSIS
     Dosage: 30 UG; QW; IM
     Route: 030
     Dates: start: 19970101, end: 19990101
  2. NEURONTIN [Concomitant]
  3. DANTRIUM [Concomitant]

REACTIONS (1)
  - HEPATITIS B [None]
